FAERS Safety Report 19063993 (Version 1)
Quarter: 2021Q1

REPORT INFORMATION
  Report Type: Report from Study
  Country: TW (occurrence: TW)
  Receive Date: 20210326
  Receipt Date: 20210326
  Transmission Date: 20210420
  Serious: Yes (Hospitalization)
  Sender: FDA-Public Use
  Company Number: TW-TAKEDA-ALL1-2013-09083

PATIENT

DRUGS (2)
  1. IDURSULFASE [Suspect]
     Active Substance: IDURSULFASE
     Dosage: 0.40 MILLIGRAM/KILOGRAM, 1X/WEEK
     Route: 065
     Dates: start: 20130319
  2. IDURSULFASE [Suspect]
     Active Substance: IDURSULFASE
     Indication: MUCOPOLYSACCHARIDOSIS II
     Dosage: 18 MG, UNKNOWN
     Route: 041
     Dates: start: 20110623

REACTIONS (2)
  - Otitis media [Recovered/Resolved]
  - Hyperplasia [Recovered/Resolved]

NARRATIVE: CASE EVENT DATE: 20130724
